FAERS Safety Report 19949164 (Version 1)
Quarter: 2021Q4

REPORT INFORMATION
  Report Type: Spontaneous
  Country: US (occurrence: US)
  Receive Date: 20211013
  Receipt Date: 20211013
  Transmission Date: 20220303
  Serious: Yes (Hospitalization)
  Sender: FDA-Public Use
  Company Number: US-STRIDES ARCOLAB LIMITED-2021SP028124

PATIENT
  Age: 34 Year
  Sex: Male

DRUGS (8)
  1. POTASSIUM CHLORIDE [Suspect]
     Active Substance: POTASSIUM CHLORIDE
     Indication: Hypokalaemia
     Dosage: UNK
     Route: 042
  2. POTASSIUM CHLORIDE [Suspect]
     Active Substance: POTASSIUM CHLORIDE
     Dosage: UNK
     Route: 048
  3. POTASSIUM PHOSPHATE, DIBASIC [Suspect]
     Active Substance: POTASSIUM PHOSPHATE, DIBASIC
     Indication: Hypokalaemia
     Dosage: UNK
     Route: 042
  4. PHOSPHORUS [Suspect]
     Active Substance: PHOSPHORUS
     Indication: Hypokalaemia
     Dosage: UNK
     Route: 048
  5. ATRIPLA [Concomitant]
     Active Substance: EFAVIRENZ\EMTRICITABINE\TENOFOVIR DISOPROXIL FUMARATE
     Indication: HIV infection
     Dosage: UNK
     Route: 065
  6. VANCOMYCIN [Concomitant]
     Active Substance: VANCOMYCIN
     Indication: Product used for unknown indication
     Dosage: UNK
     Route: 065
  7. CEFTRIAXONE [Concomitant]
     Active Substance: CEFTRIAXONE
     Indication: Product used for unknown indication
     Dosage: 2 GRAM PER DAY, TOTAL 3 DOSES WERE ADMINISTERED
     Route: 042
  8. DOXYCYCLINE [Concomitant]
     Active Substance: DOXYCYCLINE
     Indication: Product used for unknown indication
     Dosage: 100 MILLIGRAM PER DAY, TOTAL 3 DOSES WERE ADMINISTERED
     Route: 065

REACTIONS (1)
  - Therapy non-responder [Unknown]
